FAERS Safety Report 14713988 (Version 1)
Quarter: 2018Q2

REPORT INFORMATION
  Report Type: Report from Study
  Country: US (occurrence: US)
  Receive Date: 20180404
  Receipt Date: 20180404
  Transmission Date: 20180711
  Serious: No
  Sender: FDA-Public Use
  Company Number: PHEH2018US012434

PATIENT
  Age: 30 Year
  Sex: Male

DRUGS (1)
  1. GILENYA [Suspect]
     Active Substance: FINGOLIMOD HYDROCHLORIDE
     Indication: MULTIPLE SCLEROSIS
     Dosage: UNK
     Route: 048
     Dates: start: 20180324

REACTIONS (6)
  - Palpitations [Unknown]
  - Anxiety [Unknown]
  - Paraesthesia [Unknown]
  - Extrasystoles [Unknown]
  - Panic attack [Unknown]
  - Hypertension [Unknown]

NARRATIVE: CASE EVENT DATE: 20180325
